FAERS Safety Report 5995402-6 (Version None)
Quarter: 2008Q4

REPORT INFORMATION
  Report Type: 
  Country: None (occurrence: None)
  Receive Date: 20081212
  Receipt Date: 20080922
  Transmission Date: 20090506
  Serious: Yes (Hospitalization)
  Sender: FDA-Public Use
  Company Number: US-ABBOTT-08P-163-0477716-00

PATIENT
  Sex: Female
  Weight: 45.4 kg

DRUGS (6)
  1. HUMIRA [Suspect]
     Indication: RHEUMATOID ARTHRITIS
     Dates: start: 20050901, end: 20080905
  2. PLAQUENIL [Concomitant]
     Indication: ARTHRITIS
     Route: 048
     Dates: start: 19960101
  3. SULFSALAZINE [Concomitant]
     Indication: ARTHRITIS
     Dosage: 2 500MG TABLETS TWICE A DAY
     Route: 048
     Dates: start: 19960101
  4. VITAMIN B-12 [Concomitant]
     Indication: DRUG USE FOR UNKNOWN INDICATION
     Route: 050
  5. ERGOCALCIFEROL [Concomitant]
     Indication: DRUG USE FOR UNKNOWN INDICATION
     Route: 048
  6. METHYLPHENIDATE HCL [Concomitant]
     Indication: NARCOLEPSY
     Route: 048
     Dates: start: 19940101

REACTIONS (8)
  - ASTHENIA [None]
  - BASEDOW'S DISEASE [None]
  - BRONCHITIS [None]
  - COUGH [None]
  - DYSPNOEA [None]
  - EYE INFECTION [None]
  - HYPERTENSION [None]
  - NASOPHARYNGITIS [None]
